FAERS Safety Report 8826858 (Version 1)
Quarter: 2012Q4

REPORT INFORMATION
  Report Type: 
  Country: JP (occurrence: JP)
  Receive Date: 20121005
  Receipt Date: 20121005
  Transmission Date: 20130627
  Serious: Yes (Death)
  Sender: FDA-Public Use
  Company Number: JP-PFIZER INC-2012245629

PATIENT
  Age: 33 Year
  Sex: Female
  Weight: 63 kg

DRUGS (2)
  1. LIPITOR [Suspect]
     Indication: CEREBRAL INFARCTION
     Dosage: 10 mg, 1x/day
     Route: 048
     Dates: start: 201003, end: 20120110
  2. PLAVIX [Concomitant]
     Indication: CEREBRAL INFARCTION
     Dosage: 75 mg, 1x/day
     Route: 064

REACTIONS (1)
  - Foetal death [Fatal]
